FAERS Safety Report 5056514-7 (Version None)
Quarter: 2006Q2

REPORT INFORMATION
  Report Type: 
  Country: None (occurrence: None)
  Receive Date: 20060616
  Receipt Date: 20060516
  Transmission Date: 20061013
  Serious: No
  Sender: FDA-Public Use
  Company Number: 2006US001088

PATIENT
  Age: 55 Year
  Sex: Female

DRUGS (2)
  1. VESICARE [Suspect]
     Indication: POLLAKIURIA
     Dosage: 5 MG, ORAL
     Route: 048
  2. PRILOSEC [Concomitant]

REACTIONS (3)
  - DRY MOUTH [None]
  - GASTROOESOPHAGEAL REFLUX DISEASE [None]
  - PAIN [None]
